FAERS Safety Report 7382576-8 (Version None)
Quarter: 2011Q1

REPORT INFORMATION
  Report Type: 
  Country: None (occurrence: None)
  Receive Date: 20110329
  Receipt Date: 20110315
  Transmission Date: 20110831
  Serious: Yes (Other)
  Sender: FDA-Public Use
  Company Number: US-BAYER-2011-001530

PATIENT
  Sex: Female
  Weight: 107.3 kg

DRUGS (5)
  1. MIRENA [Suspect]
     Indication: CONTRACEPTION
     Dosage: 20 MCG/24HR, UNK
  2. KLONOPIN [Concomitant]
  3. MIRENA [Suspect]
     Indication: PELVIC PAIN
  4. QUINAPRIL [Concomitant]
  5. CYMBALTA [Concomitant]

REACTIONS (2)
  - FUNGAL INFECTION [None]
  - POST PROCEDURAL INFECTION [None]
